FAERS Safety Report 4796619-9 (Version None)
Quarter: 2005Q4

REPORT INFORMATION
  Report Type: 
  Country: None (occurrence: None)
  Receive Date: 20051007
  Receipt Date: 20050926
  Transmission Date: 20060501
  Serious: Yes (Other)
  Sender: FDA-Public Use
  Company Number: 2005123050

PATIENT
  Age: 69 Year
  Sex: Male
  Weight: 50 kg

DRUGS (12)
  1. CLINDAMYCIN PHOSPHATE [Suspect]
     Indication: PERIANAL ABSCESS
     Dosage: 1200 MG (600 MG, 2 IN 1 D), INTRAVENOUS
     Route: 042
     Dates: start: 20050813, end: 20050816
  2. DIGOXIN [Concomitant]
  3. AVISHOT (NAFTOPIDIL) [Concomitant]
  4. WARFARIN SODIUM [Concomitant]
  5. BUFFERIN [Concomitant]
  6. PYDOXAL (PYRIDOXAL PHOSPHATE) [Concomitant]
  7. ISONIAZID [Concomitant]
  8. RIFADIN [Concomitant]
  9. EBUTOL (ETHAMBUTOL) [Concomitant]
  10. EVIPROSAT (CHIMAPHILA UMBELLATA, EQUISETUM ARVENSE, MANGANESE CHLORIDE [Concomitant]
  11. FERROMIA (FERROUS CITRATE) [Concomitant]
  12. METHYCOBAL (MECOBALAMIN) [Concomitant]

REACTIONS (5)
  - BLOOD LACTATE DEHYDROGENASE INCREASED [None]
  - C-REACTIVE PROTEIN INCREASED [None]
  - INTERSTITIAL LUNG DISEASE [None]
  - OXYGEN SATURATION DECREASED [None]
  - PYREXIA [None]
